FAERS Safety Report 11787525 (Version 1)
Quarter: 2015Q4

REPORT INFORMATION
  Report Type: Spontaneous
  Country: FR (occurrence: FR)
  Receive Date: 20151130
  Receipt Date: 20151130
  Transmission Date: 20160305
  Serious: Yes (Hospitalization)
  Sender: FDA-Public Use
  Company Number: FR-SA-2015SA188950

PATIENT
  Age: 27 Year
  Sex: Female

DRUGS (2)
  1. NIVAQUINE [Suspect]
     Active Substance: CHLOROQUINE
     Dosage: 2 PLATELETS (ABOUT 2 GRAMS)
     Route: 048
     Dates: start: 20151009
  2. STILNOX [Suspect]
     Active Substance: ZOLPIDEM TARTRATE
     Route: 048
     Dates: start: 20151009

REACTIONS (2)
  - Altered state of consciousness [Recovered/Resolved]
  - Electrocardiogram QT prolonged [Unknown]

NARRATIVE: CASE EVENT DATE: 20151009
